FAERS Safety Report 5297628-6 (Version None)
Quarter: 2007Q2

REPORT INFORMATION
  Report Type: 
  Country: None (occurrence: None)
  Receive Date: 20070416
  Receipt Date: 20070402
  Transmission Date: 20071010
  Serious: Yes (Other)
  Sender: FDA-Public Use
  Company Number: RO-ROCHE-490482

PATIENT
  Age: 66 Year
  Sex: Female

DRUGS (1)
  1. BONVIVA [Suspect]
     Indication: OSTEOPOROSIS POSTMENOPAUSAL
     Route: 048
     Dates: start: 20060815

REACTIONS (1)
  - LEUKOPENIA [None]
